FAERS Safety Report 10910768 (Version 2)
Quarter: 2016Q4

REPORT INFORMATION
  Report Type: Spontaneous
  Country: US (occurrence: US)
  Receive Date: 20150312
  Receipt Date: 20161107
  Transmission Date: 20170206
  Serious: No
  Sender: FDA-Public Use
  Company Number: US-TEVA-545661USA

PATIENT
  Age: 38 Year
  Sex: Female

DRUGS (2)
  1. COPAXONE [Suspect]
     Active Substance: GLATIRAMER ACETATE
     Route: 058
     Dates: start: 201504
  2. COPAXONE [Suspect]
     Active Substance: GLATIRAMER ACETATE
     Indication: MULTIPLE SCLEROSIS
     Route: 058
     Dates: start: 20141009

REACTIONS (2)
  - Candida infection [Recovering/Resolving]
  - Vulvovaginal mycotic infection [Recovered/Resolved]

NARRATIVE: CASE EVENT DATE: 201502
